FAERS Safety Report 5248900-7 (Version None)
Quarter: 2007Q1

REPORT INFORMATION
  Report Type: 
  Country: None (occurrence: None)
  Receive Date: 20070228
  Receipt Date: 20070214
  Transmission Date: 20070707
  Serious: Yes (Hospitalization)
  Sender: FDA-Public Use
  Company Number: 2007CG00278

PATIENT
  Age: 23273 Day
  Sex: Male
  Weight: 97 kg

DRUGS (5)
  1. OMEPRAZOLE [Suspect]
     Indication: HIATUS HERNIA
     Route: 048
     Dates: start: 20070110, end: 20070114
  2. OMEPRAZOLE [Suspect]
     Indication: OESOPHAGITIS
     Route: 048
     Dates: start: 20070110, end: 20070114
  3. URSOLVAN 200 [Concomitant]
     Route: 048
     Dates: start: 20040101, end: 20070113
  4. DIAMICRON [Concomitant]
     Indication: DIABETES MELLITUS
     Route: 048
     Dates: start: 20040101
  5. METFORMIN HCL [Concomitant]
     Indication: DIABETES MELLITUS
     Route: 048
     Dates: start: 20040101

REACTIONS (5)
  - ASTHENIA [None]
  - C-REACTIVE PROTEIN INCREASED [None]
  - HEADACHE [None]
  - NAUSEA [None]
  - PYREXIA [None]
